FAERS Safety Report 5647025-6 (Version None)
Quarter: 2008Q1

REPORT INFORMATION
  Report Type: 
  Country: None (occurrence: None)
  Receive Date: 20080303
  Receipt Date: 20080220
  Transmission Date: 20080703
  Serious: Yes (Hospitalization)
  Sender: FDA-Public Use
  Company Number: B0510369A

PATIENT
  Age: 65 Year
  Sex: Female

DRUGS (18)
  1. ZOPHREN [Suspect]
     Indication: PROPHYLAXIS OF NAUSEA AND VOMITING
     Route: 042
     Dates: start: 20080111, end: 20080111
  2. TAXOL [Suspect]
     Route: 042
     Dates: start: 20080111, end: 20080111
  3. CARBOPLATIN [Suspect]
     Route: 042
     Dates: start: 20080111, end: 20080111
  4. SOLU-MEDROL [Suspect]
     Route: 042
  5. PROFENID [Suspect]
     Route: 042
  6. COZAAR [Suspect]
     Route: 048
     Dates: end: 20080117
  7. LEVOTHYROX [Suspect]
     Route: 048
  8. HYPNOVEL [Concomitant]
     Dates: start: 20071001
  9. PRIMPERAN INJ [Concomitant]
     Dates: start: 20071001
  10. NEXIUM [Concomitant]
     Dates: start: 20071001
  11. LOVENOX [Concomitant]
     Dates: start: 20071001
  12. ATHYMIL [Concomitant]
     Dates: start: 20071001
  13. STILNOX [Concomitant]
     Dates: start: 20071001
  14. DEBRIDAT [Concomitant]
     Dates: start: 20071001
  15. FORLAX [Concomitant]
     Dates: start: 20071001
  16. OSTRAM [Concomitant]
     Dates: start: 20071001
  17. RANITIDINE HCL [Concomitant]
  18. POLARAMINE [Concomitant]

REACTIONS (4)
  - CARDIAC FAILURE [None]
  - CHEST DISCOMFORT [None]
  - ELECTROCARDIOGRAM T WAVE INVERSION [None]
  - MYOCARDIAL ISCHAEMIA [None]
